FAERS Safety Report 23688893 (Version 1)
Quarter: 2024Q1

REPORT INFORMATION
  Report Type: Spontaneous
  Country: CZ (occurrence: CZ)
  Receive Date: 20240329
  Receipt Date: 20240329
  Transmission Date: 20240410
  Serious: Yes (Hospitalization, Other)
  Sender: FDA-Public Use
  Company Number: None

PATIENT
  Age: 52 Year
  Sex: Male

DRUGS (20)
  1. IDELALISIB [Suspect]
     Active Substance: IDELALISIB
     Indication: Product used for unknown indication
     Route: 065
  2. CYTARABINE [Suspect]
     Active Substance: CYTARABINE
     Indication: Follicular lymphoma
     Dosage: DHAP REGIMEN (A TOTAL OF THREE CYCLES WERE ADMINISTERED)
     Route: 065
  3. CYTARABINE [Suspect]
     Active Substance: CYTARABINE
     Dosage: DHAP REGIMEN (A TOTAL OF THREE CYCLES WERE ADMINISTERED)
     Route: 065
  4. DOXORUBICIN [Suspect]
     Active Substance: DOXORUBICIN
     Indication: Follicular lymphoma
     Dosage: 6 CYCLES OF R-CHOP
     Route: 065
  5. GEMCITABINE [Suspect]
     Active Substance: GEMCITABINE
     Indication: Follicular lymphoma
     Dosage: GDP SALVAGE REGIMEN
     Route: 065
  6. CARBOPLATIN [Suspect]
     Active Substance: CARBOPLATIN
     Indication: Follicular lymphoma
     Dosage: ICE CHEMOTHERAPY; RESCUE TREATMENT
     Route: 065
  7. RITUXIMAB [Suspect]
     Active Substance: RITUXIMAB
     Indication: Follicular lymphoma stage IV
     Dosage: 375 MG/M2 INTRAVENOUSLY EVERY WEEK IN CYCLE 1 (DAYS 1, 8, 15 AND 22) AND DAY 1 OF EACH 28-DAY CYCLEM
     Route: 042
  8. RITUXIMAB [Suspect]
     Active Substance: RITUXIMAB
     Indication: Lymphadenopathy
     Dosage: 6 CYCLES OF R-CHOP (RITUXIMAB, CYCLOPHOSPHAMIDE, DOXORUBICIN, VINCRISTINE, PREDNISONE)
     Route: 042
  9. PREDNISONE [Suspect]
     Active Substance: PREDNISONE
     Indication: Follicular lymphoma
     Dosage: 6 CYCLES OF R-CHOP
     Route: 065
  10. DEXAMETHASONE [Suspect]
     Active Substance: DEXAMETHASONE
     Indication: Follicular lymphoma
     Dosage: DHAP REGIMENTHREE CYCLES OF FND (FLUDARABINE, MITOXANTRONE, DEXAMETHASONE)FOUR MORE CYCLES OF ETOPOS
     Route: 065
  11. IFOSFAMIDE [Suspect]
     Active Substance: IFOSFAMIDE
     Indication: Follicular lymphoma
     Dosage: ICE CHEMOTHERAPY; RESCUE TREATMENT
     Route: 065
  12. VINCRISTINE [Suspect]
     Active Substance: VINCRISTINE
     Indication: Follicular lymphoma
     Dosage: 6 CYCLES OF R-CHOP
     Route: 065
  13. CISPLATIN [Suspect]
     Active Substance: CISPLATIN
     Indication: Follicular lymphoma
     Dosage: DHAP REGIMEN (A TOTAL OF THREE CYCLES WERE ADMINISTERED)
     Route: 065
  14. CYCLOPHOSPHAMIDE [Suspect]
     Active Substance: CYCLOPHOSPHAMIDE
     Indication: Follicular lymphoma
     Dosage: 6 CYCLES OF R-CHOP
     Route: 065
  15. LENALIDOMIDE [Suspect]
     Active Substance: LENALIDOMIDE
     Indication: Follicular lymphoma stage IV
     Dosage: 20 MILLIGRAM
     Route: 065
  16. LENALIDOMIDE [Suspect]
     Active Substance: LENALIDOMIDE
     Indication: Lymphadenopathy
     Dosage: ONCE A DAY, ON DAYS 1-21 OF THE 28-DAY CYCLE
     Route: 065
  17. BENDAMUSTINE [Suspect]
     Active Substance: BENDAMUSTINE
     Indication: Follicular lymphoma stage I
     Dosage: 2 CYCLES, 70 MG/M2
     Route: 065
  18. ETOPOSIDE [Suspect]
     Active Substance: ETOPOSIDE
     Indication: Follicular lymphoma
     Dosage: FOUR MORE CYCLES OF ETOPOSIDE WITH DEXAMETHASONE ICE CHEMOTHERAPY; RESCUE TREATMENT
     Route: 065
  19. FLUDARABINE [Suspect]
     Active Substance: FLUDARABINE PHOSPHATE
     Indication: Follicular lymphoma
     Dosage: THREE CYCLES OF FND (FLUDARABINE, MITOXANTRONE, DEXAMETHASONE)
     Route: 065
  20. MITOXANTRONE [Suspect]
     Active Substance: MITOXANTRONE HYDROCHLORIDE
     Indication: Follicular lymphoma
     Dosage: THREE CYCLES OF FND (FLUDARABINE, MITOXANTRONE, DEXAMETHASONE)
     Route: 065

REACTIONS (7)
  - Myelodysplastic syndrome [Recovered/Resolved with Sequelae]
  - Febrile neutropenia [Recovered/Resolved]
  - Herpes zoster [Recovered/Resolved]
  - Thrombocytopenia [Unknown]
  - Herpes zoster [Unknown]
  - Haematotoxicity [Unknown]
  - Disease progression [Unknown]
